FAERS Safety Report 8349629-9 (Version None)
Quarter: 2012Q2

REPORT INFORMATION
  Report Type: 
  Country: None (occurrence: None)
  Receive Date: 20120510
  Receipt Date: 20120508
  Transmission Date: 20120825
  Serious: Yes (Death, Life-Threatening, Hospitalization, Other)
  Sender: FDA-Public Use
  Company Number: ES-PFIZER INC-2012111865

PATIENT
  Age: 95 Year
  Sex: Female

DRUGS (6)
  1. ALDACTONE [Suspect]
     Indication: CARDIAC FAILURE
     Dosage: 25 MG, 1X/DAY
     Route: 048
     Dates: start: 20110301, end: 20110811
  2. FUROSEMIDE [Interacting]
     Indication: CARDIAC FAILURE
     Dosage: 20 MG, 1X/DAY
     Route: 048
     Dates: start: 20061201
  3. DIGOXIN [Concomitant]
     Indication: ATRIAL FIBRILLATION
     Dosage: 0.13 MG, 1X/DAY
     Route: 048
     Dates: start: 20061201, end: 20110811
  4. TELMISARTAN [Interacting]
     Indication: CARDIAC FAILURE
     Dosage: 20 MG, 1X/DAY
     Route: 048
     Dates: start: 20110401, end: 20110811
  5. CLOPIDOGREL [Concomitant]
     Indication: PROPHYLAXIS
     Dosage: 75 MG, 1X/DAY
     Route: 048
     Dates: start: 20081001, end: 20110811
  6. ASPIRIN [Concomitant]
     Indication: PROPHYLAXIS
     Dosage: 150 MG, 1X/DAY
     Route: 048
     Dates: end: 20110811

REACTIONS (7)
  - DRUG INTERACTION [None]
  - BRADYCARDIA [None]
  - RENAL FAILURE ACUTE [None]
  - ABDOMINAL PAIN [None]
  - HYPERKALAEMIA [None]
  - VENTRICULAR TACHYCARDIA [None]
  - MULTI-ORGAN FAILURE [None]
